FAERS Safety Report 16115776 (Version 2)
Quarter: 2019Q2

REPORT INFORMATION
  Report Type: Spontaneous
  Country: DE (occurrence: DE)
  Receive Date: 20190326
  Receipt Date: 20190402
  Transmission Date: 20190711
  Serious: Yes (Other)
  Sender: FDA-Public Use
  Company Number: DE-ROCHE-2286930

PATIENT
  Sex: Female
  Weight: 80 kg

DRUGS (1)
  1. XOLAIR [Suspect]
     Active Substance: OMALIZUMAB
     Indication: ASTHMA
     Dosage: FIRST INJECTION
     Route: 058
     Dates: start: 20190221

REACTIONS (6)
  - Blood pressure decreased [Recovered/Resolved]
  - Forced expiratory volume decreased [Recovered/Resolved]
  - Wheezing [Recovered/Resolved]
  - Anxiety [Recovered/Resolved]
  - Dyspnoea [Recovered/Resolved]
  - Malaise [Recovered/Resolved]

NARRATIVE: CASE EVENT DATE: 20190221
